FAERS Safety Report 7829635-0 (Version None)
Quarter: 2011Q4

REPORT INFORMATION
  Report Type: 
  Country: None (occurrence: None)
  Receive Date: 20111021
  Receipt Date: 20111012
  Transmission Date: 20120403
  Serious: Yes (Other)
  Sender: FDA-Public Use
  Company Number: US-BIOGENIDEC-2011BI039111

PATIENT
  Sex: Female

DRUGS (5)
  1. TYSABRI [Suspect]
     Route: 042
     Dates: start: 20070412, end: 20080408
  2. TYSABRI [Suspect]
     Indication: MULTIPLE SCLEROSIS
     Route: 042
     Dates: start: 20110426, end: 20110809
  3. AVONEX [Concomitant]
     Indication: MULTIPLE SCLEROSIS
     Route: 030
     Dates: start: 19980928
  4. TYSABRI [Suspect]
     Route: 042
     Dates: start: 20090217, end: 20100401
  5. TYSABRI [Suspect]
     Route: 042
     Dates: start: 20050131, end: 20050131

REACTIONS (2)
  - THROMBOSIS [None]
  - VEIN DISORDER [None]
